FAERS Safety Report 9381654 (Version 1)
Quarter: 2013Q3

REPORT INFORMATION
  Report Type: Spontaneous
  Country: ES (occurrence: ES)
  Receive Date: 20130703
  Receipt Date: 20130703
  Transmission Date: 20140515
  Serious: Yes (Other)
  Sender: FDA-Public Use
  Company Number: ES-JNJFOC-20130700959

PATIENT
  Sex: Female

DRUGS (4)
  1. DOXORUBICIN [Suspect]
     Indication: BREAST CANCER
     Dosage: SHORT INTRAVENOUS INFUSION,EVERY THREE WEEKS FOR FOUR CYCLES (DAYS 1, 22, 43 AND 64)
     Route: 042
  2. CYCLOPHOSPHAMIDE [Suspect]
     Indication: BREAST CANCER
     Dosage: SHORT INTRAVENOUS INFUSION, EVERY THREE WEEKS FOR FOUR CYCLES (DAYS 1, 22, 43 AND 64)
     Route: 042
  3. DOCETAXEL [Suspect]
     Indication: BREAST CANCER
     Dosage: 30 MIN INTRAVENOUS INFUSION WEEKLY FOR SIX WEEKS
     Route: 042
  4. DEXAMETHASONE [Suspect]
     Indication: BREAST CANCER
     Dosage: THREE DOSES
     Route: 065

REACTIONS (1)
  - Face oedema [Unknown]
